FAERS Safety Report 14637981 (Version 1)
Quarter: 2018Q1

REPORT INFORMATION
  Report Type: Spontaneous
  Country: US (occurrence: US)
  Receive Date: 20180313
  Receipt Date: 20180313
  Transmission Date: 20180509
  Serious: Yes (Life-Threatening, Other)
  Sender: FDA-Public Use
  Company Number: None

PATIENT
  Age: 60 Year
  Sex: Female
  Weight: 38.25 kg

DRUGS (1)
  1. DEXILANT [Suspect]
     Active Substance: DEXLANSOPRAZOLE
     Indication: ULCER
     Route: 048

REACTIONS (13)
  - Urticaria [None]
  - Hypoaesthesia [None]
  - Anaphylactic shock [None]
  - Gait disturbance [None]
  - Apparent death [None]
  - Dysstasia [None]
  - Feeling abnormal [None]
  - Swelling [None]
  - Bruxism [None]
  - Chills [None]
  - Swollen tongue [None]
  - Obstructive airways disorder [None]
  - Asthenia [None]

NARRATIVE: CASE EVENT DATE: 20180205
